FAERS Safety Report 14316297 (Version 1)
Quarter: 2017Q4

REPORT INFORMATION
  Report Type: Spontaneous
  Country: US (occurrence: US)
  Receive Date: 20171222
  Receipt Date: 20171222
  Transmission Date: 20180321
  Serious: Yes (Hospitalization)
  Sender: FDA-Public Use
  Company Number: US-WEST-WARD PHARMACEUTICALS CORP.-US-H14001-17-04920

PATIENT
  Sex: Male
  Weight: 52 kg

DRUGS (7)
  1. VIEPAX [Concomitant]
     Indication: PRODUCT USED FOR UNKNOWN INDICATION
     Route: 065
  2. PROLOL [Concomitant]
     Indication: PRODUCT USED FOR UNKNOWN INDICATION
     Route: 065
  3. SLEEPING PILL [Concomitant]
     Indication: INITIAL INSOMNIA
     Route: 065
  4. EDRONAX [Concomitant]
     Active Substance: REBOXETINE MESYLATE
     Indication: PRODUCT USED FOR UNKNOWN INDICATION
     Route: 065
  5. LITHIUM CARBONATE. [Suspect]
     Active Substance: LITHIUM CARBONATE
     Indication: DEPRESSION
     Route: 048
  6. TRAZODONE [Concomitant]
     Active Substance: TRAZODONE HYDROCHLORIDE
     Indication: PRODUCT USED FOR UNKNOWN INDICATION
     Route: 065
  7. VENLAFAXINE [Concomitant]
     Active Substance: VENLAFAXINE HYDROCHLORIDE
     Indication: PRODUCT USED FOR UNKNOWN INDICATION
     Route: 065

REACTIONS (14)
  - Muscle twitching [Not Recovered/Not Resolved]
  - Muscle spasticity [Not Recovered/Not Resolved]
  - Off label use [Unknown]
  - Nipple disorder [Not Recovered/Not Resolved]
  - Hyperhidrosis [Not Recovered/Not Resolved]
  - Dyskinesia [Not Recovered/Not Resolved]
  - Insomnia [Recovered/Resolved]
  - Rash [Not Recovered/Not Resolved]
  - Hypokinesia [Not Recovered/Not Resolved]
  - Constipation [Not Recovered/Not Resolved]
  - Pruritus [Not Recovered/Not Resolved]
  - Nipple pain [Not Recovered/Not Resolved]
  - Tremor [Not Recovered/Not Resolved]
  - Decreased appetite [Not Recovered/Not Resolved]
